FAERS Safety Report 11073379 (Version 2)
Quarter: 2020Q2

REPORT INFORMATION
  Report Type: Report from Study
  Country: BE (occurrence: BE)
  Receive Date: 20150428
  Receipt Date: 20200629
  Transmission Date: 20200713
  Serious: Yes (Death, Hospitalization, Other)
  Sender: FDA-Public Use
  Company Number: BE-BAYER-2015-122144

PATIENT
  Age: 57 Year
  Sex: Female

DRUGS (2)
  1. REGORAFENIB. [Suspect]
     Active Substance: REGORAFENIB
     Indication: COLORECTAL CANCER
     Dosage: 120 MG, OD
     Route: 048
     Dates: start: 20150319, end: 20150329
  2. BISOPROLOL AL [Concomitant]
     Indication: HYPERTENSION
     Dosage: UNK
     Dates: start: 20130515

REACTIONS (4)
  - Blood pressure increased [None]
  - Posterior reversible encephalopathy syndrome [Recovered/Resolved]
  - Generalised tonic-clonic seizure [None]
  - Colorectal cancer [Fatal]

NARRATIVE: CASE EVENT DATE: 20150329
